FAERS Safety Report 8821526 (Version 1)
Quarter: 2012Q4

REPORT INFORMATION
  Report Type: 
  Country: US (occurrence: US)
  Receive Date: 20121002
  Receipt Date: 20121002
  Transmission Date: 20130627
  Serious: Yes (Other)
  Sender: FDA-Public Use
  Company Number: US-PFIZER INC-2012242679

PATIENT
  Age: 46 Year
  Sex: Female
  Weight: 74.83 kg

DRUGS (4)
  1. LYRICA [Suspect]
     Indication: PERIPHERAL NERVE INJURY
     Dosage: 150 mg, 3x/day
  2. LYRICA [Suspect]
     Indication: BACK DISORDER
  3. ROXYCODONE [Concomitant]
     Indication: PAIN
     Dosage: 15 mg, 3x/day
  4. FLEXERIL [Concomitant]
     Indication: MUSCLE SPASMS
     Dosage: 10 mg, 3x/day

REACTIONS (2)
  - Astigmatism [Not Recovered/Not Resolved]
  - Back disorder [Unknown]
